FAERS Safety Report 6040361-3 (Version None)
Quarter: 2009Q1

REPORT INFORMATION
  Report Type: 
  Country: None (occurrence: None)
  Receive Date: 20090116
  Receipt Date: 20080226
  Transmission Date: 20090719
  Serious: No
  Sender: FDA-Public Use
  Company Number: US-BRISTOL-MYERS SQUIBB COMPANY-14092134

PATIENT
  Sex: Female

DRUGS (5)
  1. ABILIFY [Suspect]
     Indication: SCHIZOAFFECTIVE DISORDER
     Dosage: THE DOSE WAS REDUCED TO 10MG DAILY SINCE 26-FEB-2008.
  2. MINOCIN [Suspect]
     Route: 048
  3. BENZACLIN [Suspect]
  4. WELLBUTRIN [Concomitant]
  5. ADDERALL 10 [Concomitant]

REACTIONS (3)
  - FUNGAL INFECTION [None]
  - FURUNCLE [None]
  - RASH [None]
